FAERS Safety Report 16649954 (Version 1)
Quarter: 2019Q3

REPORT INFORMATION
  Report Type: Other
  Country: PT (occurrence: PT)
  Receive Date: 20190731
  Receipt Date: 20190731
  Transmission Date: 20191004
  Serious: Yes (Other)
  Sender: FDA-Public Use
  Company Number: PT-DEXPHARM-20190588

PATIENT
  Age: 70 Year
  Sex: Female

DRUGS (2)
  1. LEVETIRACETAM. [Suspect]
     Active Substance: LEVETIRACETAM
  2. BRIGATINIB [Suspect]
     Active Substance: BRIGATINIB
     Dosage: 180MG/DAY

REACTIONS (1)
  - Photosensitivity reaction [Not Recovered/Not Resolved]
